FAERS Safety Report 5708686-6 (Version None)
Quarter: 2008Q2

REPORT INFORMATION
  Report Type: 
  Country: None (occurrence: None)
  Receive Date: 20080417
  Receipt Date: 20080408
  Transmission Date: 20081010
  Serious: Yes (Other)
  Sender: FDA-Public Use
  Company Number: FR-BOEHRINGER INGELHEIM GMBH, GERMANY-2008-FF-00225FF

PATIENT
  Sex: Male
  Weight: 78 kg

DRUGS (5)
  1. APTIVUS [Suspect]
     Indication: HIV INFECTION
     Dates: start: 20071101, end: 20080312
  2. BACTRIM [Concomitant]
     Indication: ANTIBIOTIC PROPHYLAXIS
     Route: 048
     Dates: start: 20050504
  3. FUZEON [Concomitant]
     Indication: HIV INFECTION
     Route: 058
     Dates: start: 20071119
  4. ISENTRESS [Concomitant]
     Indication: HIV INFECTION
     Route: 048
     Dates: start: 20071119
  5. ETRAVIRINE [Concomitant]
     Indication: HIV INFECTION
     Route: 048
     Dates: start: 20071119

REACTIONS (4)
  - CYTOLYTIC HEPATITIS [None]
  - HEPATITIS B [None]
  - JAUNDICE [None]
  - TRANSAMINASES INCREASED [None]
